FAERS Safety Report 24425420 (Version 1)
Quarter: 2024Q4

REPORT INFORMATION
  Report Type: Spontaneous
  Country: FR (occurrence: FR)
  Receive Date: 20241011
  Receipt Date: 20241011
  Transmission Date: 20250115
  Serious: Yes (Death, Other)
  Sender: AUROBINDO
  Company Number: FR-AFSSAPS-PV2024000913

PATIENT
  Age: 14 Year
  Sex: Female
  Weight: 38 kg

DRUGS (3)
  1. ACETAMINOPHEN [Suspect]
     Active Substance: ACETAMINOPHEN
     Indication: Poisoning deliberate
     Dosage: 80 GRAM
     Route: 048
     Dates: start: 20240914
  2. OLANZAPINE [Suspect]
     Active Substance: OLANZAPINE
     Indication: Poisoning deliberate
     Dosage: 45 MILLIGRAM
     Route: 048
     Dates: start: 20240914
  3. CYAMEMAZINE [Suspect]
     Active Substance: CYAMEMAZINE
     Indication: Poisoning deliberate
     Dosage: 60 MILLIGRAM
     Route: 048
     Dates: start: 20240914

REACTIONS (4)
  - Acute hepatic failure [Fatal]
  - Conduction disorder [Fatal]
  - Tachycardia [Fatal]
  - Intentional overdose [Fatal]

NARRATIVE: CASE EVENT DATE: 20240914
